FAERS Safety Report 18828478 (Version 1)
Quarter: 2021Q1

REPORT INFORMATION
  Report Type: Spontaneous
  Country: US (occurrence: US)
  Receive Date: 20210201
  Receipt Date: 20210201
  Transmission Date: 20210419
  Serious: No
  Sender: FDA-Public Use
  Company Number: US-ABBVIE-20K-163-3535117-00

PATIENT
  Age: 28 Year
  Sex: Female
  Weight: 62.65 kg

DRUGS (1)
  1. HUMIRA [Suspect]
     Active Substance: ADALIMUMAB
     Indication: PSORIASIS
     Route: 058
     Dates: start: 20200812

REACTIONS (9)
  - Hypoaesthesia [Unknown]
  - Pain in extremity [Recovered/Resolved]
  - Device issue [Unknown]
  - Chills [Recovered/Resolved]
  - Feeling jittery [Unknown]
  - Nausea [Recovered/Resolved]
  - Paraesthesia [Unknown]
  - Cough [Not Recovered/Not Resolved]
  - Nasopharyngitis [Not Recovered/Not Resolved]

NARRATIVE: CASE EVENT DATE: 20200812
